FAERS Safety Report 8370913-7 (Version None)
Quarter: 2012Q2

REPORT INFORMATION
  Report Type: 
  Country: None (occurrence: None)
  Receive Date: 20120517
  Receipt Date: 20120509
  Transmission Date: 20120825
  Serious: Yes (Hospitalization)
  Sender: FDA-Public Use
  Company Number: USA/USA/12/0024310

PATIENT
  Age: 44 Year
  Sex: Female

DRUGS (14)
  1. METOPROLOL TARTRATE [Concomitant]
  2. MULTIVITAMIN [Concomitant]
  3. WARFARIN SODIUM [Suspect]
     Indication: ANTIPHOSPHOLIPID SYNDROME
     Dosage: 1 TO 6MG PER DAY, ORAL
     Route: 048
  4. AMLODIPINE BESYLATE [Concomitant]
  5. GABAPENTIN [Concomitant]
  6. OXYCODONE HCL [Concomitant]
  7. SIMVASTATIN [Suspect]
     Indication: PRODUCT USED FOR UNKNOWN INDICATION
     Dosage: 20 MG, 1 D, ORAL
     Route: 048
  8. INSULIN LISPRO (INSULIN LISPRO) [Concomitant]
  9. CYMBALTA [Suspect]
     Indication: DEPRESSION
     Dosage: 69 MG, 1 IN 1 D, ORAL
     Route: 048
  10. CYMBALTA [Suspect]
     Indication: PAIN IN EXTREMITY
     Dosage: 69 MG, 1 IN 1 D, ORAL
     Route: 048
  11. CYMBALTA [Suspect]
     Indication: HYPOAESTHESIA
     Dosage: 69 MG, 1 IN 1 D, ORAL
     Route: 048
  12. ACETAMINOPHEN [Suspect]
     Indication: NEURALGIA
     Dosage: 650 MG, UP TO FOUR TIMES A DAY, AS NEEDED, ORAL
     Route: 048
  13. LIDOCAINE EXTERNAL PATCH 5% (LIDOCAINE) [Concomitant]
  14. LANTUS [Concomitant]

REACTIONS (5)
  - INTERNATIONAL NORMALISED RATIO INCREASED [None]
  - DRUG INTERACTION [None]
  - TRANSAMINASES INCREASED [None]
  - ANAEMIA [None]
  - INTERNATIONAL NORMALISED RATIO DECREASED [None]
